FAERS Safety Report 21142822 (Version 1)
Quarter: 2022Q3

REPORT INFORMATION
  Report Type: Spontaneous
  Country: US (occurrence: None)
  Receive Date: 20220728
  Receipt Date: 20220728
  Transmission Date: 20221027
  Serious: Yes (Other)
  Sender: FDA-Public Use
  Company Number: None

PATIENT
  Age: 47 Year
  Sex: Female
  Weight: 58.05 kg

DRUGS (3)
  1. DR. SCHOLLS CALLUS REMOVERS [Suspect]
     Active Substance: SALICYLIC ACID
     Indication: Hyperkeratosis
     Dosage: OTHER QUANTITY : 2 PATCH(ES);?OTHER FREQUENCY : ONCE EVERY 48 HRS;?
     Route: 061
  2. UNSPECIFIED INGREDIENT [Concomitant]
     Active Substance: UNSPECIFIED INGREDIENT
  3. VITAMINS [Concomitant]
     Active Substance: VITAMINS

REACTIONS (1)
  - Drug hypersensitivity [None]

NARRATIVE: CASE EVENT DATE: 20220726
